FAERS Safety Report 12506110 (Version 2)
Quarter: 2017Q4

REPORT INFORMATION
  Report Type: Spontaneous
  Country: RU (occurrence: RU)
  Receive Date: 20160628
  Receipt Date: 20171017
  Transmission Date: 20180320
  Serious: Yes (Death, Other)
  Sender: FDA-Public Use
  Company Number: RU-INCYTE CORPORATION-2016IN003678

PATIENT

DRUGS (4)
  1. MERCAPTOPURINE. [Suspect]
     Active Substance: MERCAPTOPURINE
     Indication: PRIMARY MYELOFIBROSIS
     Dosage: 50 MG, QD
     Route: 065
  2. JAKAVI [Suspect]
     Active Substance: RUXOLITINIB
     Indication: DISEASE PROGRESSION
  3. MERCAPTOPURINE. [Suspect]
     Active Substance: MERCAPTOPURINE
     Indication: DISEASE PROGRESSION
  4. JAKAVI [Suspect]
     Active Substance: RUXOLITINIB
     Indication: PRIMARY MYELOFIBROSIS
     Dosage: 5 MG, BID
     Route: 065

REACTIONS (1)
  - Pneumonia bacterial [Fatal]
